FAERS Safety Report 22269969 (Version 2)
Quarter: 2023Q2

REPORT INFORMATION
  Report Type: Report from Study
  Country: US (occurrence: US)
  Receive Date: 20230501
  Receipt Date: 20230622
  Transmission Date: 20230722
  Serious: Yes (Hospitalization, Other)
  Sender: FDA-Public Use
  Company Number: US-ABBVIE-4732189

PATIENT
  Sex: Male

DRUGS (1)
  1. IMBRUVICA [Suspect]
     Active Substance: IBRUTINIB
     Indication: Waldenstrom^s macroglobulinaemia
     Route: 048

REACTIONS (9)
  - Skin cancer [Not Recovered/Not Resolved]
  - Onychoclasis [Unknown]
  - Skin lesion [Unknown]
  - Thoracic operation [Unknown]
  - Weight increased [Unknown]
  - Increased tendency to bruise [Not Recovered/Not Resolved]
  - Hepatic atrophy [Unknown]
  - Oedema peripheral [Unknown]
  - Nail disorder [Unknown]
